FAERS Safety Report 19454716 (Version 1)
Quarter: 2021Q2

REPORT INFORMATION
  Report Type: Spontaneous
  Country: US (occurrence: US)
  Receive Date: 20210623
  Receipt Date: 20210623
  Transmission Date: 20210717
  Serious: Yes (Hospitalization)
  Sender: FDA-Public Use
  Company Number: US-ALKERMES INC.-ALK-2021-003193

PATIENT
  Sex: Male

DRUGS (2)
  1. VIVITROL [Suspect]
     Active Substance: NALTREXONE
     Indication: PRODUCT USED FOR UNKNOWN INDICATION
     Dosage: 380 MILLIGRAM, QMO
     Route: 030
  2. SUBUTEX [Suspect]
     Active Substance: BUPRENORPHINE HYDROCHLORIDE
     Indication: WITHDRAWAL SYNDROME
     Route: 065

REACTIONS (8)
  - Medication error [Recovered/Resolved]
  - Feeling abnormal [Not Recovered/Not Resolved]
  - Withdrawal syndrome [Unknown]
  - Confusional state [Not Recovered/Not Resolved]
  - Pain [Recovered/Resolved]
  - Mobility decreased [Not Recovered/Not Resolved]
  - Weight decreased [Not Recovered/Not Resolved]
  - Malaise [Not Recovered/Not Resolved]
